FAERS Safety Report 7640136-5 (Version None)
Quarter: 2011Q3

REPORT INFORMATION
  Report Type: 
  Country: None (occurrence: None)
  Receive Date: 20110728
  Receipt Date: 20110622
  Transmission Date: 20111222
  Serious: No
  Sender: FDA-Public Use
  Company Number: US-BAYER-2011-055642

PATIENT
  Sex: Female

DRUGS (4)
  1. MOTRIN [Concomitant]
     Dosage: 3 DF, UNK
     Route: 048
  2. ALEVE (CAPLET) [Suspect]
     Indication: PRODUCT USED FOR UNKNOWN INDICATION
     Dosage: 1 DF, UNK
     Route: 048
  3. ADVIL LIQUI-GELS [Concomitant]
     Dosage: 2 DF, UNK
     Route: 048
  4. PERC [Concomitant]
     Dosage: 1 DF, UNK
     Route: 048

REACTIONS (1)
  - INSOMNIA [None]
